FAERS Safety Report 7279956-8 (Version None)
Quarter: 2011Q1

REPORT INFORMATION
  Report Type: 
  Country: None (occurrence: None)
  Receive Date: 20110125
  Receipt Date: 20110104
  Transmission Date: 20110831
  Serious: Yes (Other)
  Sender: FDA-Public Use
  Company Number: 20110010

PATIENT
  Age: 63 Year
  Sex: Female
  Weight: 71.5 kg

DRUGS (2)
  1. MAGNESIUM SULFATE [Concomitant]
  2. MAGNESIUM SULFATE [Suspect]
     Indication: HYPOMAGNESAEMIA
     Dosage: 500 MG SLOW IV PUSH INTRAVENOUS
     Route: 042
     Dates: start: 20101221, end: 20101221

REACTIONS (3)
  - PRODUCT QUALITY ISSUE [None]
  - BLOOD PRESSURE INCREASED [None]
  - NO THERAPEUTIC RESPONSE [None]
